FAERS Safety Report 4589160-X (Version None)
Quarter: 2005Q1

REPORT INFORMATION
  Report Type: 
  Country: None (occurrence: None)
  Receive Date: 20050214
  Receipt Date: 20050214
  Transmission Date: 20050727
  Serious: Yes (Life-Threatening, Hospitalization, Disabling)
  Sender: FDA-Public Use
  Company Number: None

PATIENT
  Age: 26 Year
  Sex: Female
  Weight: 113.3993 kg

DRUGS (2)
  1. ZOLOFT [Suspect]
     Indication: DEPRESSION
     Dosage: 12.5 MG  DAILY ORAL
     Route: 048
     Dates: start: 20010901, end: 20011031
  2. ZOLOFT [Suspect]
     Dosage: 25 MG DAILY ORAL
     Route: 048

REACTIONS (6)
  - ABNORMAL BEHAVIOUR [None]
  - AGGRESSION [None]
  - AGITATION [None]
  - HALLUCINATION [None]
  - HYPERTENSION [None]
  - PSYCHOTIC DISORDER [None]
